FAERS Safety Report 10018818 (Version 2)
Quarter: 2014Q2

REPORT INFORMATION
  Report Type: Report from Study
  Country: US (occurrence: US)
  Receive Date: 20140318
  Receipt Date: 20140422
  Transmission Date: 20141212
  Serious: Yes (Hospitalization)
  Sender: FDA-Public Use
  Company Number: US-GLAXOSMITHKLINE-Z0022219A

PATIENT
  Age: 57 Year
  Sex: Female
  Weight: 123 kg

DRUGS (4)
  1. BELIMUMAB [Suspect]
     Indication: SYSTEMIC LUPUS ERYTHEMATOSUS
     Dosage: 10MGK CYCLIC
     Route: 042
     Dates: start: 20131007
  2. PREDNISONE [Concomitant]
     Indication: SYSTEMIC LUPUS ERYTHEMATOSUS
     Dosage: 40MG PER DAY
     Route: 048
     Dates: start: 20140220
  3. ASPIRIN [Concomitant]
     Indication: HYPERTENSION
     Dosage: 325MG PER DAY
     Route: 048
     Dates: start: 20140220
  4. IMURAN [Concomitant]
     Indication: SYSTEMIC LUPUS ERYTHEMATOSUS
     Dosage: 150MG PER DAY
     Route: 048
     Dates: start: 20140220

REACTIONS (3)
  - VIIth nerve paralysis [Recovered/Resolved with Sequelae]
  - Hypertension [Recovered/Resolved with Sequelae]
  - Cerebrovascular accident [Recovered/Resolved with Sequelae]
